FAERS Safety Report 8336467-6 (Version None)
Quarter: 2012Q2

REPORT INFORMATION
  Report Type: 
  Country: None (occurrence: None)
  Receive Date: 20120504
  Receipt Date: 20120424
  Transmission Date: 20120825
  Serious: Yes (Other)
  Sender: FDA-Public Use
  Company Number: JP-PFIZER INC-2012106667

PATIENT
  Age: 61 Year
  Sex: Male

DRUGS (9)
  1. WARFARIN [Concomitant]
     Dosage: UNK
     Route: 048
  2. DIOVAN [Concomitant]
     Dosage: UNK
     Route: 048
  3. GAMOFA [Concomitant]
     Dosage: UNK
     Route: 048
  4. LIPITOR [Suspect]
     Dosage: 5 MG, DAILY
     Route: 048
     Dates: end: 20120420
  5. DIOVAN [Concomitant]
     Dosage: UNK
     Route: 048
  6. BISOPROLOL FUMARATE [Concomitant]
     Dosage: UNK
     Route: 048
  7. AMLODIPINE BESILATE [Concomitant]
     Dosage: UNK
     Route: 048
  8. TEPRENONE [Concomitant]
     Dosage: UNK
     Route: 048
  9. SUNRYTHM [Concomitant]
     Dosage: UNK
     Route: 048

REACTIONS (5)
  - NEPHROTIC SYNDROME [None]
  - MYOGLOBIN BLOOD INCREASED [None]
  - BLOOD UREA INCREASED [None]
  - BLOOD CREATINE PHOSPHOKINASE INCREASED [None]
  - BLOOD CREATININE INCREASED [None]
